FAERS Safety Report 8005738-5 (Version None)
Quarter: 2011Q4

REPORT INFORMATION
  Report Type: 
  Country: None (occurrence: None)
  Receive Date: 20111223
  Receipt Date: 20111214
  Transmission Date: 20120403
  Serious: Yes (Other)
  Sender: FDA-Public Use
  Company Number: US-ROCHE-803149

PATIENT
  Sex: Male
  Weight: 81.72 kg

DRUGS (2)
  1. ACCUTANE [Suspect]
     Indication: ACNE CYSTIC
     Route: 065
     Dates: start: 19851201, end: 19860401
  2. ACCUTANE [Suspect]
     Route: 065
     Dates: start: 19951201, end: 19960401

REACTIONS (6)
  - IRRITABLE BOWEL SYNDROME [None]
  - INFLAMMATORY BOWEL DISEASE [None]
  - EMOTIONAL DISTRESS [None]
  - RECTAL HAEMORRHAGE [None]
  - RECTAL POLYP [None]
  - COLITIS ULCERATIVE [None]
